FAERS Safety Report 5886035-0 (Version None)
Quarter: 2008Q3

REPORT INFORMATION
  Report Type: 
  Country: None (occurrence: None)
  Receive Date: 20080917
  Receipt Date: 20080724
  Transmission Date: 20090109
  Serious: No
  Sender: FDA-Public Use
  Company Number: US-BAYER-200829561NA

PATIENT
  Age: 27 Year
  Sex: Female
  Weight: 113 kg

DRUGS (2)
  1. YAZ [Suspect]
     Indication: CONTRACEPTION
     Route: 048
     Dates: start: 20080625
  2. MIRENA [Suspect]
     Indication: DRUG USE FOR UNKNOWN INDICATION
     Route: 015
     Dates: start: 20080301, end: 20080625

REACTIONS (2)
  - POST PROCEDURAL HAEMORRHAGE [None]
  - WITHDRAWAL BLEEDING IRREGULAR [None]
